FAERS Safety Report 17826289 (Version 3)
Quarter: 2020Q3

REPORT INFORMATION
  Report Type: Report from Study
  Country: IT (occurrence: IT)
  Receive Date: 20200526
  Receipt Date: 20200806
  Transmission Date: 20201102
  Serious: Yes (Other)
  Sender: FDA-Public Use
  Company Number: IT-SA-2020SA104729

PATIENT

DRUGS (9)
  1. LEVOFLOXACIN. [Concomitant]
     Active Substance: LEVOFLOXACIN
     Indication: PROPHYLAXIS
     Dosage: 750 MG, QD
     Route: 048
     Dates: start: 20200331, end: 20200411
  2. PLAQUENIL [Concomitant]
     Active Substance: HYDROXYCHLOROQUINE SULFATE
     Indication: PRE-EXISTING DISEASE
     Dosage: 400 MG, QD
     Route: 048
     Dates: start: 20200331, end: 20200411
  3. MOVICOL [MACROGOL 4000;POTASSIUM CHLORIDE;SODIUM BICARBONATE;SODIUM CH [Concomitant]
     Dosage: 2 DF, QD (2 SACHETS)
     Route: 048
     Dates: start: 20200405, end: 20200412
  4. SARILUMAB [Suspect]
     Active Substance: SARILUMAB
     Indication: COVID-19
     Dosage: 1 DF, 1X (1 BAG AT INFUSION RATE OF 100 ML/H)
     Route: 042
     Dates: start: 20200401, end: 20200401
  5. BRONCOVALEAS [SALBUTAMOL] [Concomitant]
     Indication: PRE-EXISTING DISEASE
     Dosage: 1 DF, QD (1 VIAL)
     Route: 050
     Dates: start: 20200403, end: 20200412
  6. CLEXANE [Concomitant]
     Active Substance: ENOXAPARIN SODIUM
     Indication: PROPHYLAXIS
     Dosage: 4000 U , QD
     Route: 058
     Dates: start: 20200406
  7. KALETRA [Concomitant]
     Active Substance: LOPINAVIR\RITONAVIR
     Indication: PRE-EXISTING DISEASE
     Dosage: 2 DF, QD
     Route: 048
     Dates: start: 20200331, end: 20200406
  8. CLENIL [BECLOMETASONE DIPROPIONATE] [Concomitant]
     Indication: PRE-EXISTING DISEASE
     Dosage: 2 DF, QD (2 VIAL)
     Route: 050
     Dates: start: 20200403, end: 20200412
  9. LASIX [Concomitant]
     Active Substance: FUROSEMIDE
     Indication: PROPHYLAXIS
     Dosage: 50 MG, QD
     Route: 048
     Dates: start: 20200406, end: 20200413

REACTIONS (1)
  - Alanine aminotransferase increased [Unknown]

NARRATIVE: CASE EVENT DATE: 20200406
